FAERS Safety Report 4499037-6 (Version None)
Quarter: 2004Q4

REPORT INFORMATION
  Report Type: 
  Country: None (occurrence: None)
  Receive Date: 20041110
  Receipt Date: 20041110
  Transmission Date: 20050328
  Serious: Yes (Hospitalization)
  Sender: FDA-Public Use
  Company Number: None

PATIENT
  Age: 57 Year
  Sex: Male

DRUGS (2)
  1. ASPIRIN [Suspect]
     Indication: PERIPHERAL VASCULAR DISORDER
     Dosage: 325 MG PO DAILY
     Route: 048
  2. CLOPIDOGREL BISULFATE [Suspect]
     Indication: PERIPHERAL VASCULAR DISORDER
     Dosage: 75 MG PO DAILY
     Route: 048

REACTIONS (2)
  - HAEMORRHAGE INTRACRANIAL [None]
  - TREATMENT NONCOMPLIANCE [None]
